FAERS Safety Report 9200941 (Version 3)
Quarter: 2013Q2

REPORT INFORMATION
  Report Type: Spontaneous
  Country: FR (occurrence: None)
  Receive Date: 20130320
  Receipt Date: 20130430
  Transmission Date: 20140414
  Serious: Yes (Hospitalization, Other)
  Sender: FDA-Public Use
  Company Number: 2013035068

PATIENT
  Age: 3 Year
  Sex: Female

DRUGS (1)
  1. PRIVIGEN (IMMUNE GLOBULIN INTRAVENOUS (HUMAN) 10% LIQUID) [Suspect]
     Indication: HYPOGAMMAGLOBULINAEMIA
     Dosage: 450 MG/KG, POSOLOGY: 450MG/KG, LOW INFUSION
     Route: 042
     Dates: start: 20130228, end: 20130228

REACTIONS (6)
  - Shock [None]
  - Pyrexia [None]
  - Chills [None]
  - Hypotension [None]
  - Tachycardia [None]
  - Pigmentation disorder [None]
